FAERS Safety Report 8300605-1 (Version None)
Quarter: 2012Q2

REPORT INFORMATION
  Report Type: 
  Country: None (occurrence: None)
  Receive Date: 20120420
  Receipt Date: 20120411
  Transmission Date: 20120825
  Serious: Yes (Hospitalization, Other)
  Sender: FDA-Public Use
  Company Number: PHHY2012BR031521

PATIENT
  Sex: Female
  Weight: 52 kg

DRUGS (5)
  1. ENALAPRIL MALEATE [Concomitant]
     Indication: HYPERTENSION
     Dosage: 1 DF, QD
     Route: 048
  2. LEVOTHYROXINE SODIUM [Concomitant]
     Indication: THYROID DISORDER
     Dosage: 1 DF, QD
     Route: 048
  3. EXELON [Suspect]
     Dosage: PATCH 5 (CM2)
     Route: 062
     Dates: start: 20120329
  4. EXELON [Suspect]
     Indication: DEMENTIA ALZHEIMER'S TYPE
     Dosage: PATCH 5 (CM2)
     Route: 062
  5. OMEPRAZOLE [Concomitant]
     Indication: GASTRIC DISORDER
     Dosage: 1 DF, QD
     Route: 048
     Dates: start: 20111001

REACTIONS (7)
  - FEMUR FRACTURE [None]
  - URINARY TRACT INFECTION [None]
  - HEART RATE INCREASED [None]
  - FALL [None]
  - HYPERTENSION [None]
  - HALLUCINATION, VISUAL [None]
  - AGITATION [None]
